FAERS Safety Report 22615260 (Version 2)
Quarter: 2024Q1

REPORT INFORMATION
  Report Type: Report from Study
  Country: US (occurrence: US)
  Receive Date: 20230619
  Receipt Date: 20240314
  Transmission Date: 20240410
  Serious: Yes (Hospitalization)
  Sender: FDA-Public Use
  Company Number: US-ARGENX-2023-ARGX-US001935AA

PATIENT

DRUGS (1)
  1. VYVGART [Suspect]
     Active Substance: EFGARTIGIMOD ALFA-FCAB
     Indication: Myasthenia gravis
     Dosage: UNK
     Route: 042
     Dates: start: 20230125

REACTIONS (4)
  - Myasthenia gravis crisis [Recovering/Resolving]
  - Weight increased [Recovering/Resolving]
  - Skin weeping [Recovering/Resolving]
  - Myasthenia gravis crisis [Unknown]
